FAERS Safety Report 10327243 (Version 1)
Quarter: 2014Q3

REPORT INFORMATION
  Report Type: Spontaneous
  Country: US (occurrence: US)
  Receive Date: 20140720
  Receipt Date: 20140720
  Transmission Date: 20150326
  Serious: No
  Sender: FDA-Public Use
  Company Number: US-009507513-1407USA006256

PATIENT
  Sex: Female

DRUGS (1)
  1. RAGWITEK [Suspect]
     Active Substance: AMBROSIA ARTEMISIIFOLIA POLLEN
     Indication: ALLERGY PROPHYLAXIS
     Dosage: 1 DF, QD; 12 AMB A1-U
     Route: 048

REACTIONS (4)
  - Drug ineffective [Unknown]
  - Ocular hyperaemia [Unknown]
  - Rhinorrhoea [Unknown]
  - Eye pruritus [Unknown]
